FAERS Safety Report 25680935 (Version 1)
Quarter: 2025Q3

REPORT INFORMATION
  Report Type: Spontaneous
  Country: US (occurrence: US)
  Receive Date: 20250814
  Receipt Date: 20250814
  Transmission Date: 20251021
  Serious: No
  Sender: LUPIN
  Company Number: US-LUPIN PHARMACEUTICALS INC.-2025-07081

PATIENT
  Age: 54 Year
  Weight: 86.168 kg

DRUGS (2)
  1. METFORMIN HYDROCHLORIDE [Suspect]
     Active Substance: METFORMIN HYDROCHLORIDE
     Indication: Diabetes mellitus
     Route: 065
  2. METFORMIN HYDROCHLORIDE [Suspect]
     Active Substance: METFORMIN HYDROCHLORIDE
     Indication: Insulin resistance

REACTIONS (6)
  - Gastrointestinal disorder [Unknown]
  - Weight decreased [Unknown]
  - Malaise [Unknown]
  - Blood cholesterol decreased [Unknown]
  - Drug delivery system issue [Unknown]
  - Product substitution issue [Unknown]
